FAERS Safety Report 7675222-7 (Version None)
Quarter: 2011Q3

REPORT INFORMATION
  Report Type: 
  Country: None (occurrence: None)
  Receive Date: 20110810
  Receipt Date: 20110810
  Transmission Date: 20111222
  Serious: Yes (Other)
  Sender: FDA-Public Use
  Company Number: None

PATIENT
  Sex: Male
  Weight: 135.17 kg

DRUGS (6)
  1. DEPAKOTE ER [Concomitant]
     Route: 048
  2. VITAMIN D [Concomitant]
     Route: 048
  3. FANAPT [Suspect]
     Indication: BIPOLAR II DISORDER
     Dosage: 8 MG
     Route: 048
     Dates: start: 20110426, end: 20110721
  4. CALAN [Concomitant]
     Indication: DEPRESSION
     Route: 048
  5. TOPAMAX [Concomitant]
     Route: 048
  6. LAMICTAL [Concomitant]
     Route: 048

REACTIONS (3)
  - RETROGRADE EJACULATION [None]
  - TESTICULAR PAIN [None]
  - PRESYNCOPE [None]
